FAERS Safety Report 11320234 (Version 1)
Quarter: 2015Q3

REPORT INFORMATION
  Report Type: Spontaneous
  Country: US (occurrence: None)
  Receive Date: 20150728
  Receipt Date: 20150728
  Transmission Date: 20151125
  Serious: No
  Sender: FDA-Public Use
  Company Number: None

PATIENT
  Age: 37 Year
  Sex: Male
  Weight: 70.31 kg

DRUGS (2)
  1. FLUTICASONE PROPIONATE. [Suspect]
     Active Substance: FLUTICASONE PROPIONATE
     Indication: DRUG THERAPY
  2. RETIN-A [Concomitant]
     Active Substance: TRETINOIN

REACTIONS (2)
  - Anosmia [None]
  - Dysgeusia [None]

NARRATIVE: CASE EVENT DATE: 20141121
